FAERS Safety Report 9810905 (Version 1)
Quarter: 2014Q1

REPORT INFORMATION
  Report Type: Spontaneous
  Country: US (occurrence: US)
  Receive Date: 20140110
  Receipt Date: 20140110
  Transmission Date: 20141002
  Serious: Yes (Other)
  Sender: FDA-Public Use
  Company Number: US-SANOFI-AVENTIS-2012SA093707

PATIENT
  Sex: Female

DRUGS (2)
  1. PLAVIX [Suspect]
     Indication: ANTICOAGULANT THERAPY
     Route: 048
  2. VESICARE [Suspect]
     Route: 048
     Dates: start: 201208

REACTIONS (4)
  - Angioedema [Unknown]
  - Skin discolouration [Unknown]
  - Urticaria [Recovered/Resolved]
  - Pruritus [Unknown]
